FAERS Safety Report 6720551-4 (Version None)
Quarter: 2010Q2

REPORT INFORMATION
  Report Type: 
  Country: None (occurrence: None)
  Receive Date: 20100511
  Receipt Date: 20100511
  Transmission Date: 20101027
  Serious: Yes (Other)
  Sender: FDA-Public Use
  Company Number: None

PATIENT
  Sex: Female

DRUGS (1)
  1. GABAPENTIN [Suspect]
     Indication: NEURALGIA
     Dosage: 100MG QID PO
     Route: 048
     Dates: start: 20090701, end: 20090801

REACTIONS (2)
  - PRODUCT SUBSTITUTION ISSUE [None]
  - SOMNOLENCE [None]
